FAERS Safety Report 9437192 (Version 1)
Quarter: 2013Q3

REPORT INFORMATION
  Report Type: Report from Study
  Country: EC (occurrence: EC)
  Receive Date: 20130802
  Receipt Date: 20130802
  Transmission Date: 20140515
  Serious: Yes (Other)
  Sender: FDA-Public Use
  Company Number: PHHY2013EC082041

PATIENT
  Sex: Female

DRUGS (5)
  1. DIOVAN [Suspect]
     Indication: HYPERTENSION
     Dosage: 1 DF, QD
     Route: 048
     Dates: start: 1999, end: 2012
  2. LEXAPRO [Concomitant]
     Indication: DEPRESSION
     Dosage: 0.5 DF, QD (20 MG)
     Route: 048
  3. OMEPRAZOLE [Concomitant]
     Indication: GASTRITIS
     Dosage: 20 MG, BID
     Route: 048
  4. CARDIOASPIRINA [Concomitant]
     Dosage: 81 MG, QD
     Route: 048
  5. RIVOTRIL [Concomitant]
     Indication: SLEEP DISORDER
     Dosage: QD

REACTIONS (2)
  - Intervertebral disc displacement [Unknown]
  - Abasia [Unknown]
